FAERS Safety Report 7179007-X (Version None)
Quarter: 2010Q4

REPORT INFORMATION
  Report Type: 
  Country: None (occurrence: None)
  Receive Date: 20101221
  Receipt Date: 20101214
  Transmission Date: 20110411
  Serious: Yes (Death, Life-Threatening, Hospitalization, Other)
  Sender: FDA-Public Use
  Company Number: PHHY2010SE85714

PATIENT
  Sex: Female

DRUGS (5)
  1. DICLOFENAC [Suspect]
     Indication: BACK PAIN
  2. DICLOFENAC [Suspect]
     Indication: CHEST PAIN
  3. DEXIBUPROFEN [Suspect]
  4. ACETAMINOPHEN [Concomitant]
     Indication: PAIN
  5. DEXTROPROPOXIFEN [Concomitant]

REACTIONS (10)
  - CARDIAC ARREST [None]
  - GASTROINTESTINAL HAEMORRHAGE [None]
  - GENERAL PHYSICAL HEALTH DETERIORATION [None]
  - LOSS OF CONSCIOUSNESS [None]
  - MELAENA [None]
  - OESOPHAGEAL HAEMORRHAGE [None]
  - OESOPHAGITIS [None]
  - RESUSCITATION [None]
  - STENT PLACEMENT [None]
  - TACHYCARDIA [None]
